FAERS Safety Report 6061510-7 (Version None)
Quarter: 2009Q1

REPORT INFORMATION
  Report Type: 
  Country: None (occurrence: None)
  Receive Date: 20090130
  Receipt Date: 20090130
  Transmission Date: 20090719
  Serious: Yes (Other)
  Sender: FDA-Public Use
  Company Number: None

PATIENT
  Sex: Female
  Weight: 64.4108 kg

DRUGS (1)
  1. NUVARING [Suspect]
     Indication: CONTRACEPTION
     Dosage: 0.120MG/0.015MG 3WEEKS AT A TIME VAGENAL
     Route: 067
     Dates: end: 20090119

REACTIONS (6)
  - DISCOMFORT [None]
  - HAEMORRHAGE [None]
  - INJURY [None]
  - IUCD COMPLICATION [None]
  - PAIN [None]
  - SKIN LACERATION [None]
